FAERS Safety Report 13081869 (Version 2)
Quarter: 2017Q1

REPORT INFORMATION
  Report Type: Spontaneous
  Country: US (occurrence: US)
  Receive Date: 20170103
  Receipt Date: 20170207
  Transmission Date: 20170428
  Serious: No
  Sender: FDA-Public Use
  Company Number: US-PFIZER INC-2016605465

PATIENT
  Age: 74 Year
  Sex: Male
  Weight: 77 kg

DRUGS (5)
  1. LYRICA [Suspect]
     Active Substance: PREGABALIN
     Dosage: 25 MG, 2X/DAY
     Dates: start: 201612, end: 201612
  2. LYRICA [Suspect]
     Active Substance: PREGABALIN
     Dosage: UNK
  3. LYRICA [Suspect]
     Active Substance: PREGABALIN
     Indication: NEUROPATHY PERIPHERAL
     Dosage: 25 MG, 1X/DAY
     Dates: start: 201612, end: 201612
  4. LYRICA [Suspect]
     Active Substance: PREGABALIN
     Dosage: 25 MG, 2X/DAY, ONE IN THE MORNING, TWO AT NIGHT
     Dates: start: 201612, end: 201612
  5. LYRICA [Suspect]
     Active Substance: PREGABALIN
     Dosage: 25 MG, 2X/DAY, TWO IN THE MORNING, TWO AT NIGHT
     Dates: start: 201612

REACTIONS (1)
  - Drug ineffective [Not Recovered/Not Resolved]

NARRATIVE: CASE EVENT DATE: 201612
